FAERS Safety Report 22296854 (Version 2)
Quarter: 2025Q2

REPORT INFORMATION
  Report Type: Report from Study
  Country: FR (occurrence: FR)
  Receive Date: 20230509
  Receipt Date: 20250606
  Transmission Date: 20250717
  Serious: Yes (Other)
  Sender: AUROBINDO
  Company Number: FR-PFIZER INC-202300161902

PATIENT
  Age: 55 Year
  Sex: Male

DRUGS (2)
  1. RITONAVIR [Interacting]
     Active Substance: RITONAVIR
     Indication: COVID-19 treatment
     Route: 065
  2. TACROLIMUS [Interacting]
     Active Substance: TACROLIMUS
     Indication: Organ transplant
     Route: 065

REACTIONS (4)
  - Acute kidney injury [Unknown]
  - Immunosuppressant drug level increased [Unknown]
  - Drug interaction [Unknown]
  - Labelled drug-drug interaction medication error [Unknown]
